FAERS Safety Report 13121431 (Version 1)
Quarter: 2017Q1

REPORT INFORMATION
  Report Type: Spontaneous
  Country: US (occurrence: US)
  Receive Date: 20170117
  Receipt Date: 20170117
  Transmission Date: 20170428
  Serious: Yes (Hospitalization, Other)
  Sender: FDA-Public Use
  Company Number: US-GLAXOSMITHKLINE-US2017GSK005398

PATIENT
  Age: 73 Year
  Sex: Female
  Weight: 52.61 kg

DRUGS (4)
  1. WELLBUTRIN XL [Suspect]
     Active Substance: BUPROPION HYDROCHLORIDE
     Indication: DEPRESSION
     Dosage: 150 MG, QD
     Route: 048
     Dates: start: 2004
  2. FISH OIL [Concomitant]
     Active Substance: FISH OIL
     Indication: EXCESSIVE DIETARY SUPPLEMENT INTAKE
     Dosage: UNK
     Route: 048
     Dates: start: 2011
  3. DHEA [Concomitant]
     Active Substance: PRASTERONE
     Indication: EXCESSIVE DIETARY SUPPLEMENT INTAKE
     Dosage: 10 MG, 1D
     Route: 048
  4. WELLBUTRIN XL [Suspect]
     Active Substance: BUPROPION HYDROCHLORIDE
     Indication: ANXIETY

REACTIONS (3)
  - Feeling abnormal [Recovering/Resolving]
  - Hospitalisation [Unknown]
  - Amnesia [Recovering/Resolving]

NARRATIVE: CASE EVENT DATE: 201612
